FAERS Safety Report 10184863 (Version 2)
Quarter: 2014Q2

REPORT INFORMATION
  Report Type: Spontaneous
  Country: US (occurrence: None)
  Receive Date: 20140519
  Receipt Date: 20140612
  Transmission Date: 20141212
  Serious: Yes (Other)
  Sender: FDA-Public Use
  Company Number: 2014P1004144

PATIENT
  Age: 25 Year
  Sex: Female

DRUGS (2)
  1. MYORISAN 40 MG [Suspect]
     Dates: start: 20140107, end: 20140505
  2. UNSPECIFIED [Suspect]

REACTIONS (4)
  - Pregnancy on oral contraceptive [None]
  - Maternal exposure during pregnancy [None]
  - Abortion complete [None]
  - Abortion induced [None]
